FAERS Safety Report 7413493-2 (Version None)
Quarter: 2011Q2

REPORT INFORMATION
  Report Type: 
  Country: None (occurrence: None)
  Receive Date: 20110413
  Receipt Date: 20110406
  Transmission Date: 20111010
  Serious: Yes (Other)
  Sender: FDA-Public Use
  Company Number: PHHY2011CA28832

PATIENT
  Sex: Female

DRUGS (2)
  1. AFINITOR [Suspect]
     Indication: CARCINOID TUMOUR
     Dosage: 10 MG, QD
     Route: 048
     Dates: start: 20110307
  2. SANDOSTATIN LAR [Suspect]
     Indication: CARCINOID TUMOUR
     Dosage: 30 MG, EVERY THREE WEEKS
     Route: 030
     Dates: start: 20080401

REACTIONS (7)
  - PRODUCTIVE COUGH [None]
  - WHITE BLOOD CELL COUNT DECREASED [None]
  - WHEEZING [None]
  - ASTHMA [None]
  - DYSPNOEA [None]
  - RASH [None]
  - FATIGUE [None]
